FAERS Safety Report 4680975-6 (Version None)
Quarter: 2005Q2

REPORT INFORMATION
  Report Type: 
  Country: None (occurrence: None)
  Receive Date: 20050601
  Receipt Date: 20050601
  Transmission Date: 20051028
  Serious: Yes (Hospitalization)
  Sender: FDA-Public Use
  Company Number: None

PATIENT
  Sex: Male
  Weight: 3.175 kg

DRUGS (2)
  1. FLUOXETINE [Suspect]
     Dosage: 60 MG EACH DAY ORAL
     Route: 048
     Dates: start: 19930101, end: 20050517
  2. CLONAZEPAM [Suspect]
     Dosage: 0.5 MG EACH DAY ORAL
     Route: 048

REACTIONS (3)
  - AGITATION NEONATAL [None]
  - CYANOSIS NEONATAL [None]
  - NEONATAL DISORDER [None]
